FAERS Safety Report 4680982-3 (Version None)
Quarter: 2005Q2

REPORT INFORMATION
  Report Type: 
  Country: None (occurrence: None)
  Receive Date: 20050601
  Receipt Date: 20050601
  Transmission Date: 20051028
  Serious: Yes (Hospitalization)
  Sender: FDA-Public Use
  Company Number: None

PATIENT
  Age: 78 Year
  Sex: Male

DRUGS (5)
  1. HUMIRA [Suspect]
     Indication: PACHYMENINGITIS
     Dosage: 40MG  EVERY 15 DAYS SUBCUTANEOUS
     Route: 058
     Dates: start: 20040905, end: 20041010
  2. METHOTREXATE [Concomitant]
  3. PLAQUENIL [Concomitant]
  4. MINOCIN [Concomitant]
  5. PREDINOSONE [Concomitant]

REACTIONS (2)
  - DYSKINESIA [None]
  - DYSPHASIA [None]
